FAERS Safety Report 7964915-X (Version None)
Quarter: 2011Q4

REPORT INFORMATION
  Report Type: 
  Country: None (occurrence: None)
  Receive Date: 20111129
  Receipt Date: 20111129
  Transmission Date: 20120403
  Serious: Yes (Other)
  Sender: FDA-Public Use
  Company Number: None

PATIENT
  Sex: Female

DRUGS (1)
  1. MAYBELLINE NY (BRAND) FIT ME FOUNDATION SPF 18 (NO PREF. NAME) [Suspect]
     Indication: PROPHYLAXIS AGAINST SOLAR RADIATION
     Dosage: TOP
     Route: 061
     Dates: start: 20111104

REACTIONS (2)
  - APPLICATION SITE SWELLING [None]
  - THROAT TIGHTNESS [None]
